FAERS Safety Report 19073482 (Version 1)
Quarter: 2021Q1

REPORT INFORMATION
  Report Type: Report from Study
  Country: None (occurrence: US)
  Receive Date: 20210330
  Receipt Date: 20210330
  Transmission Date: 20210420
  Serious: Yes (Hospitalization)
  Sender: FDA-Public Use
  Company Number: US-ABBVIE-21K-163-3830243-00

PATIENT
  Age: 64 Year
  Sex: Male

DRUGS (11)
  1. ZOCOR [Concomitant]
     Active Substance: SIMVASTATIN
     Indication: PRODUCT USED FOR UNKNOWN INDICATION
  2. LUPRON DEPOT [Suspect]
     Active Substance: LEUPROLIDE ACETATE
     Indication: PRODUCT USED FOR UNKNOWN INDICATION
     Route: 065
  3. XTANDI [Suspect]
     Active Substance: ENZALUTAMIDE
     Indication: BONE CANCER
     Route: 048
  4. TAMSULOSIN [Concomitant]
     Active Substance: TAMSULOSIN
     Indication: PRODUCT USED FOR UNKNOWN INDICATION
  5. XTANDI [Suspect]
     Active Substance: ENZALUTAMIDE
     Indication: METASTATIC NEOPLASM
     Route: 048
     Dates: start: 20191201
  6. XGEVA [Suspect]
     Active Substance: DENOSUMAB
     Indication: PRODUCT USED FOR UNKNOWN INDICATION
     Route: 065
  7. CHANTIX [Concomitant]
     Active Substance: VARENICLINE TARTRATE
     Indication: PRODUCT USED FOR UNKNOWN INDICATION
  8. MEGACE [Concomitant]
     Active Substance: MEGESTROL ACETATE
     Indication: PRODUCT USED FOR UNKNOWN INDICATION
  9. EFFEXOR [Concomitant]
     Active Substance: VENLAFAXINE HYDROCHLORIDE
     Indication: PRODUCT USED FOR UNKNOWN INDICATION
  10. XTANDI [Suspect]
     Active Substance: ENZALUTAMIDE
     Route: 048
  11. PROVENGE [Suspect]
     Active Substance: SIPULEUCEL-T
     Indication: PRODUCT USED FOR UNKNOWN INDICATION
     Route: 065

REACTIONS (6)
  - Product physical issue [Unknown]
  - Fatigue [Not Recovered/Not Resolved]
  - Decreased appetite [Not Recovered/Not Resolved]
  - Sleep disorder [Recovering/Resolving]
  - Jugular vein thrombosis [Recovering/Resolving]
  - Product storage error [Unknown]

NARRATIVE: CASE EVENT DATE: 20190719
